FAERS Safety Report 4440382-8 (Version None)
Quarter: 2004Q3

REPORT INFORMATION
  Report Type: 
  Country: None (occurrence: None)
  Receive Date: 20040903
  Receipt Date: 20040824
  Transmission Date: 20050211
  Serious: Yes (Hospitalization)
  Sender: FDA-Public Use
  Company Number: JP-BRISTOL-MYERS SQUIBB COMPANY-12682266

PATIENT
  Age: 63 Year
  Sex: Female

DRUGS (1)
  1. MAXIPIME [Suspect]
     Indication: BRONCHITIS ACUTE
     Dosage: ONCE DAILY
     Route: 041
     Dates: start: 20040531, end: 20040531

REACTIONS (1)
  - SHOCK [None]
